FAERS Safety Report 8414712-6 (Version None)
Quarter: 2012Q2

REPORT INFORMATION
  Report Type: 
  Country: None (occurrence: None)
  Receive Date: 20120605
  Receipt Date: 20120601
  Transmission Date: 20120825
  Serious: Yes (Hospitalization)
  Sender: FDA-Public Use
  Company Number: BR-ELI_LILLY_AND_COMPANY-BR201202002507

PATIENT
  Sex: Male
  Weight: 125 kg

DRUGS (2)
  1. BYETTA [Suspect]
     Indication: TYPE 2 DIABETES MELLITUS
     Dosage: 10 UG, BID
     Route: 058
     Dates: end: 20120125
  2. BYETTA [Suspect]
     Dosage: 10 UG, BID
     Route: 058

REACTIONS (1)
  - BRAIN NEOPLASM [None]
